FAERS Safety Report 6078181-6 (Version None)
Quarter: 2009Q1

REPORT INFORMATION
  Report Type: 
  Country: None (occurrence: None)
  Receive Date: 20090213
  Receipt Date: 20090204
  Transmission Date: 20090719
  Serious: Yes (Other)
  Sender: FDA-Public Use
  Company Number: PHHY2009JP01899

PATIENT
  Sex: Female

DRUGS (9)
  1. DIOVAN [Suspect]
     Indication: HYPERTENSION
     Dosage: 40 MG, QD
     Route: 048
     Dates: start: 20071210, end: 20080208
  2. DIOVAN [Suspect]
     Dosage: 80 MG, QD
     Route: 048
     Dates: start: 20080209
  3. RHEUMATREX [Concomitant]
     Dosage: 4 MG
     Route: 048
     Dates: start: 20071210
  4. FOLIAMIN [Concomitant]
     Dosage: 5 MG
     Route: 048
     Dates: start: 20071210
  5. MOBIC [Concomitant]
     Dosage: 10 MG
     Route: 048
     Dates: start: 20071210
  6. BONALON [Concomitant]
     Dosage: 35 MG
     Route: 048
     Dates: start: 20071210
  7. CYANOCOBALAMIN [Concomitant]
     Dosage: 1500 UG
     Route: 048
     Dates: start: 20071210
  8. SODIUM BICARBONATE IN PLASTIC CONTAINER [Concomitant]
     Dosage: 3 G
     Route: 048
     Dates: start: 20071210
  9. CALCIUM POLYSTYRENE SULFONATE [Concomitant]
     Dosage: 15 G
     Route: 048
     Dates: start: 20071201

REACTIONS (1)
  - HYPERKALAEMIA [None]
